FAERS Safety Report 7633512-8 (Version None)
Quarter: 2011Q3

REPORT INFORMATION
  Report Type: 
  Country: None (occurrence: None)
  Receive Date: 20110725
  Receipt Date: 20110720
  Transmission Date: 20111222
  Serious: Yes (Other)
  Sender: FDA-Public Use
  Company Number: US-ELI_LILLY_AND_COMPANY-US201005000736

PATIENT
  Sex: Male
  Weight: 123.36 kg

DRUGS (11)
  1. LIPITOR [Concomitant]
     Indication: BLOOD CHOLESTEROL
  2. METOPROLOL TARTRATE [Concomitant]
     Indication: HYPERTENSION
  3. ACTOS [Concomitant]
     Indication: DIABETES MELLITUS
  4. VASOTEC [Concomitant]
     Indication: HYPERTENSION
  5. LANTUS [Concomitant]
     Indication: DIABETES MELLITUS
  6. GLYBURIDE [Concomitant]
     Indication: DIABETES MELLITUS
  7. TRILIPIX [Concomitant]
     Indication: BLOOD CHOLESTEROL
  8. GEMFIBROZIL [Concomitant]
     Indication: BLOOD CHOLESTEROL
  9. FERROUS SULFATE TAB [Concomitant]
     Indication: SUPPLEMENTATION THERAPY
  10. BYETTA [Suspect]
     Indication: DIABETES MELLITUS
     Dates: start: 20090326, end: 20090423
  11. JANUVIA [Concomitant]
     Indication: DIABETES MELLITUS

REACTIONS (5)
  - HAEMATURIA [None]
  - PANCREATITIS [None]
  - RENAL FAILURE [None]
  - OFF LABEL USE [None]
  - RENAL DISORDER [None]
